FAERS Safety Report 8517188-3 (Version None)
Quarter: 2012Q2

REPORT INFORMATION
  Report Type: 
  Country: None (occurrence: None)
  Receive Date: 20120406
  Receipt Date: 20100903
  Transmission Date: 20120825
  Serious: Yes (Other)
  Sender: FDA-Public Use
  Company Number: PHEH2008US09029

PATIENT
  Age: 57 Year
  Sex: Male

DRUGS (9)
  1. GEMFIBROZIL [Concomitant]
  2. LEVOTHYROXINE SODIUM [Concomitant]
  3. TEMAZEPAM [Concomitant]
  4. ABILIFY [Concomitant]
  5. LITHIUM CARBONATE [Concomitant]
  6. TASIGNA [Suspect]
     Indication: CHRONIC MYELOID LEUKAEMIA
     Dosage: 200 MG, BID, ORAL
     Route: 048
     Dates: start: 20080916, end: 20081002
  7. ACETAMINOPHEN [Concomitant]
  8. IBUPROFEN [Concomitant]
  9. LAMOTRIGINE [Concomitant]

REACTIONS (5)
  - FATIGUE [None]
  - TREATMENT NONCOMPLIANCE [None]
  - ERECTILE DYSFUNCTION [None]
  - ASTHENIA [None]
  - CONSTIPATION [None]
